FAERS Safety Report 21801544 (Version 2)
Quarter: 2023Q1

REPORT INFORMATION
  Report Type: Report from Study
  Country: EG (occurrence: EG)
  Receive Date: 20221230
  Receipt Date: 20230111
  Transmission Date: 20230417
  Serious: Yes (Other)
  Sender: FDA-Public Use
  Company Number: EG-002147023-NVSC2022EG299715

PATIENT
  Age: 30 Year
  Sex: Female

DRUGS (2)
  1. METHOTREXATE [Suspect]
     Active Substance: METHOTREXATE
     Indication: Psoriasis
     Dosage: (1 CENTIMETRE), QW
     Route: 065
     Dates: start: 20200801, end: 20210101
  2. METHOTREXATE [Suspect]
     Active Substance: METHOTREXATE
     Dosage: (1 CENTIMETRE), QW
     Route: 065
     Dates: start: 20220101, end: 20220410

REACTIONS (7)
  - Alopecia [Recovered/Resolved]
  - Furuncle [Recovered/Resolved]
  - Dry skin [Not Recovered/Not Resolved]
  - Psoriasis [Recovering/Resolving]
  - Purpura [Not Recovered/Not Resolved]
  - Feeling abnormal [Recovered/Resolved]
  - Drug ineffective [Not Recovered/Not Resolved]

NARRATIVE: CASE EVENT DATE: 20200801
